FAERS Safety Report 19703328 (Version 2)
Quarter: 2021Q3

REPORT INFORMATION
  Report Type: Spontaneous
  Country: GB (occurrence: GB)
  Receive Date: 20210816
  Receipt Date: 20210820
  Transmission Date: 20211014
  Serious: Yes (Hospitalization, Disabling, Other)
  Sender: FDA-Public Use
  Company Number: GB-BEH-2021134731

PATIENT
  Age: 23 Year
  Sex: Female
  Weight: 45 kg

DRUGS (1)
  1. ANTI?D IMMUNOGLOBULIN (INN) [Suspect]
     Active Substance: HUMAN RHO(D) IMMUNE GLOBULIN
     Indication: PRODUCT USED FOR UNKNOWN INDICATION
     Route: 065

REACTIONS (15)
  - Diarrhoea [Recovering/Resolving]
  - Hypotension [Recovering/Resolving]
  - Haemoglobin increased [Unknown]
  - Protein urine present [Unknown]
  - Dehydration [Recovering/Resolving]
  - Tension headache [Recovering/Resolving]
  - Head discomfort [Recovering/Resolving]
  - Brain injury [Recovering/Resolving]
  - Dizziness [Not Recovered/Not Resolved]
  - Food refusal [Unknown]
  - Bedridden [Unknown]
  - Asthenia [Not Recovered/Not Resolved]
  - Vertigo [Recovering/Resolving]
  - Nausea [Recovering/Resolving]
  - Eye pain [Unknown]

NARRATIVE: CASE EVENT DATE: 20210626
